FAERS Safety Report 9419672 (Version 2)
Quarter: 2013Q3

REPORT INFORMATION
  Report Type: Spontaneous
  Country: DE (occurrence: DE)
  Receive Date: 20130725
  Receipt Date: 20130808
  Transmission Date: 20140515
  Serious: Yes (Life-Threatening, Hospitalization, Other)
  Sender: FDA-Public Use
  Company Number: DE-ROXANE LABORATORIES, INC.-2013-BI-21763GD

PATIENT
  Age: 45 Year
  Sex: Female

DRUGS (1)
  1. MORPHINE [Suspect]

REACTIONS (6)
  - Toxicity to various agents [Unknown]
  - Suicide attempt [Unknown]
  - Loss of consciousness [Recovered/Resolved]
  - Haemorrhage intracranial [Unknown]
  - Brain oedema [Unknown]
  - Hypercapnia [Unknown]
